FAERS Safety Report 12109632 (Version 3)
Quarter: 2016Q1

REPORT INFORMATION
  Report Type: Spontaneous
  Country: US (occurrence: US)
  Receive Date: 20160224
  Receipt Date: 20160331
  Transmission Date: 20160526
  Serious: Yes (Hospitalization, Other)
  Sender: FDA-Public Use
  Company Number: US-GLAXOSMITHKLINE-US2016025789

PATIENT
  Age: 54 Year
  Sex: Female
  Weight: 87.98 kg

DRUGS (23)
  1. LOVASTATIN. [Concomitant]
     Active Substance: LOVASTATIN
  2. OXYCODONE [Concomitant]
     Active Substance: OXYCODONE
  3. RANITIDINE [Concomitant]
     Active Substance: RANITIDINE\RANITIDINE HYDROCHLORIDE
  4. SYMBICORT [Concomitant]
     Active Substance: BUDESONIDE\FORMOTEROL FUMARATE DIHYDRATE
  5. TANZEUM [Suspect]
     Active Substance: ALBIGLUTIDE
     Indication: DIABETES MELLITUS
     Dosage: 30 MG, WE
     Route: 042
     Dates: start: 20160104
  6. ACETAMINOPHEN. [Concomitant]
     Active Substance: ACETAMINOPHEN
  7. CYCLOBENZAPRINE [Concomitant]
     Active Substance: CYCLOBENZAPRINE
  8. HYDROCHLOROTHIAZIDE. [Concomitant]
     Active Substance: HYDROCHLOROTHIAZIDE
  9. DOCUSATE + SENNA [Concomitant]
     Active Substance: DOCUSATE SODIUM\SENNA LEAF
  10. ALBUTEROL. [Concomitant]
     Active Substance: ALBUTEROL
  11. BUPROPION. [Concomitant]
     Active Substance: BUPROPION
  12. AMITRIPTYLINE [Concomitant]
     Active Substance: AMITRIPTYLINE
  13. METOPROLOL TARTRATE. [Concomitant]
     Active Substance: METOPROLOL TARTRATE
  14. PROMETHAZINE [Concomitant]
     Active Substance: PROMETHAZINE\PROMETHAZINE HYDROCHLORIDE
  15. BUDESONIDE-FORMOTEROL [Concomitant]
     Active Substance: BUDESONIDE\FORMOTEROL
  16. CEFTRIAXONE. [Concomitant]
     Active Substance: CEFTRIAXONE
  17. METFORMIN [Concomitant]
     Active Substance: METFORMIN HYDROCHLORIDE
  18. FERROUS SULFATE [Concomitant]
     Active Substance: FERROUS SULFATE\FERROUS SULFATE, DRIED
  19. LORATADINE. [Concomitant]
     Active Substance: LORATADINE
  20. ASA [Concomitant]
     Active Substance: ASPIRIN
  21. ZOLPIDEM [Concomitant]
     Active Substance: ZOLPIDEM\ZOLPIDEM TARTRATE
  22. BENZONATATE. [Concomitant]
     Active Substance: BENZONATATE
  23. ONDANSETRON [Concomitant]
     Active Substance: ONDANSETRON

REACTIONS (3)
  - Abscess drainage [Unknown]
  - Postoperative abscess [Unknown]
  - Abscess [Unknown]

NARRATIVE: CASE EVENT DATE: 20160216
